FAERS Safety Report 8183932-0 (Version None)
Quarter: 2012Q1

REPORT INFORMATION
  Report Type: 
  Country: None (occurrence: None)
  Receive Date: 20120305
  Receipt Date: 20120228
  Transmission Date: 20120608
  Serious: Yes (Other)
  Sender: FDA-Public Use
  Company Number: FR-ROCHE-802896

PATIENT
  Sex: Male

DRUGS (6)
  1. MABTHERA [Suspect]
     Route: 042
  2. MABTHERA [Suspect]
     Route: 042
  3. BACTRIM DS [Suspect]
     Indication: PROPHYLAXIS
     Route: 048
     Dates: start: 20110519
  4. MABTHERA [Suspect]
     Indication: WALDENSTROM'S MACROGLOBULINAEMIA
     Route: 042
     Dates: start: 20110519, end: 20110609
  5. MABTHERA [Suspect]
     Route: 042
  6. VALACICLOVIR [Suspect]
     Indication: PROPHYLAXIS
     Route: 048
     Dates: start: 20110519

REACTIONS (2)
  - HYPOACUSIS [None]
  - TINNITUS [None]
